FAERS Safety Report 6902851-8 (Version None)
Quarter: 2010Q3

REPORT INFORMATION
  Report Type: 
  Country: None (occurrence: None)
  Receive Date: 20100803
  Receipt Date: 20080911
  Transmission Date: 20110219
  Serious: Yes (Other)
  Sender: FDA-Public Use
  Company Number: US-PFIZER INC-2008077790

PATIENT
  Sex: Female
  Weight: 98.636 kg

DRUGS (4)
  1. LYRICA [Suspect]
     Indication: FIBROMYALGIA
     Dates: start: 20080812
  2. LYRICA [Suspect]
     Indication: NEURALGIA
  3. AMLODIPINE [Concomitant]
  4. DICLOFENAC [Concomitant]

REACTIONS (13)
  - BALANCE DISORDER [None]
  - CLUMSINESS [None]
  - DEPRESSED MOOD [None]
  - EUPHORIC MOOD [None]
  - FALL [None]
  - FATIGUE [None]
  - FEELING DRUNK [None]
  - FLUID RETENTION [None]
  - INCREASED APPETITE [None]
  - MIGRAINE [None]
  - SOMNOLENCE [None]
  - SWELLING [None]
  - WEIGHT INCREASED [None]
